FAERS Safety Report 11944998 (Version 4)
Quarter: 2016Q2

REPORT INFORMATION
  Report Type: Report from Study
  Country: CA (occurrence: CA)
  Receive Date: 20160125
  Receipt Date: 20160613
  Transmission Date: 20160815
  Serious: Yes (Other)
  Sender: FDA-Public Use
  Company Number: PHHY2015CA155969

PATIENT
  Age: 71 Year
  Sex: Female

DRUGS (2)
  1. SANDOSTATIN LAR DEPOT [Suspect]
     Active Substance: OCTREOTIDE ACETATE
     Indication: ACROMEGALY
     Dosage: 20 MG, QMO (EVERY 4 WEEKS)
     Route: 030
     Dates: start: 20151124
  2. SANDOSTATIN [Suspect]
     Active Substance: OCTREOTIDE ACETATE
     Indication: ACROMEGALY
     Dosage: 100 UG, TID
     Route: 058
     Dates: start: 20151018

REACTIONS (8)
  - Blood pressure systolic increased [Unknown]
  - Body temperature decreased [Unknown]
  - Osteoarthritis [Unknown]
  - Dysuria [Unknown]
  - Urinary tract infection [Not Recovered/Not Resolved]
  - Gait disturbance [Unknown]
  - Heart rate decreased [Unknown]
  - Blood pressure increased [Unknown]

NARRATIVE: CASE EVENT DATE: 20151124
